FAERS Safety Report 5060646-7 (Version None)
Quarter: 2006Q3

REPORT INFORMATION
  Report Type: 
  Country: None (occurrence: None)
  Receive Date: 20060725
  Receipt Date: 20060517
  Transmission Date: 20061208
  Serious: Yes (Other)
  Sender: FDA-Public Use
  Company Number: PHEH2006US06528

PATIENT
  Age: 61 Year
  Sex: Male

DRUGS (8)
  1. THALIDOMIDE [Concomitant]
     Indication: MULTIPLE MYELOMA
     Dosage: 100 MG, DAILY
     Dates: start: 20050112, end: 20050615
  2. VELCADE [Concomitant]
     Dosage: 2.2 MG, DAYS 1, 4, 8 + 11
     Dates: start: 20051013, end: 20060405
  3. MELPHALAN [Concomitant]
     Dosage: 18 MG, DAILY X 4
     Dates: start: 20060204, end: 20060405
  4. REVLIMID [Concomitant]
     Dosage: 25 MG, DAILY X 21 DAYS
     Dates: start: 20060510
  5. DEXAMETHASONE TAB [Concomitant]
     Indication: MULTIPLE MYELOMA
     Dosage: 20 MG, DAILY X 4 DAYS Q MONTH
     Dates: start: 20050209, end: 20060203
  6. PREDNISONE [Concomitant]
     Dosage: 120 MG, DAILY X4 DAYS Q MONTH
     Dates: start: 20050228, end: 20060405
  7. PREDNISONE [Concomitant]
     Dosage: 120 MG, DAILY X4 DAYS Q2WEEKS
     Dates: start: 20060510
  8. ZOMETA [Suspect]
     Indication: MULTIPLE MYELOMA
     Dosage: 4 MG EVERY MONTH
     Dates: start: 20020103, end: 20060328

REACTIONS (13)
  - ANAEMIA OF MALIGNANT DISEASE [None]
  - BONE DISORDER [None]
  - DEEP VEIN THROMBOSIS [None]
  - DENTAL PROSTHESIS PLACEMENT [None]
  - ENANTHEMA [None]
  - GINGIVAL RECESSION [None]
  - LOCAL SWELLING [None]
  - ORAL PAIN [None]
  - OSTEONECROSIS [None]
  - POOR PERSONAL HYGIENE [None]
  - TOOTH ABSCESS [None]
  - TOOTH DISORDER [None]
  - TOOTH EXTRACTION [None]
